FAERS Safety Report 9633121 (Version 2)
Quarter: 2013Q4

REPORT INFORMATION
  Report Type: Report from Study
  Country: FR (occurrence: FR)
  Receive Date: 20131019
  Receipt Date: 20131111
  Transmission Date: 20140711
  Serious: Yes (Death)
  Sender: FDA-Public Use
  Company Number: FR-ROCHE-1291425

PATIENT
  Age: 52 Year
  Sex: Male

DRUGS (11)
  1. ZELBORAF [Suspect]
     Indication: MALIGNANT MELANOMA
     Dosage: 8 DF
     Route: 048
     Dates: start: 20130221, end: 20130424
  2. ACTISKENAN [Concomitant]
     Indication: PAIN
     Dosage: 20 MG
     Route: 048
  3. SKENAN [Concomitant]
     Dosage: 60 MG
     Route: 048
  4. FOLIC ACID [Concomitant]
     Dosage: 5 MG
     Route: 048
  5. TAMSULOSIN [Concomitant]
     Route: 048
  6. CETORNAN [Concomitant]
     Route: 048
  7. METFORMIN [Concomitant]
     Route: 048
  8. PRAVASTATIN [Concomitant]
     Route: 048
  9. XELEVIA [Concomitant]
     Route: 048
  10. LYRICA [Concomitant]
     Route: 048
  11. DESLORATADINE [Concomitant]
     Route: 048

REACTIONS (1)
  - Disease progression [Fatal]
